FAERS Safety Report 20150293 (Version 16)
Quarter: 2023Q4

REPORT INFORMATION
  Report Type: Report from Study
  Country: FR (occurrence: None)
  Receive Date: 20211206
  Receipt Date: 20231005
  Transmission Date: 20240110
  Serious: Yes (Hospitalization, Other)
  Sender: FDA-Public Use
  Company Number: FR-ROCHE-2967069

PATIENT
  Age: 70 Year
  Sex: Female
  Weight: 81 kg

DRUGS (8)
  1. ATEZOLIZUMAB [Suspect]
     Active Substance: ATEZOLIZUMAB
     Indication: Neoplasm
     Dosage: 1200 MILLIGRAM LAST DOSE RECEIVED BEFORE EVENT, 1200 MILLIGRAM TOTAL DOSE RECEIVED SINCE THE FIRST A
     Route: 041
     Dates: start: 20211124, end: 20211124
  2. ATENOLOL [Concomitant]
     Active Substance: ATENOLOL
     Indication: Hypertension
     Route: 048
  3. FLECAINIDE [Concomitant]
     Active Substance: FLECAINIDE
     Indication: Arrhythmia prophylaxis
     Route: 048
  4. DOLIPRANE [Concomitant]
     Active Substance: ACETAMINOPHEN
     Indication: Pain prophylaxis
     Route: 048
  5. MIANSERIN [Concomitant]
     Active Substance: MIANSERIN
     Indication: Depression
     Route: 048
  6. SODIUM CHLORIDE [Concomitant]
     Active Substance: SODIUM CHLORIDE
  7. OXYGEN [Concomitant]
     Active Substance: OXYGEN
     Dosage: 2L/MIN
  8. ELIQUIS [Concomitant]
     Active Substance: APIXABAN
     Route: 048

REACTIONS (5)
  - Hyperthermia [Not Recovered/Not Resolved]
  - Cytokine release syndrome [Recovered/Resolved]
  - Pleural effusion [Recovered/Resolved with Sequelae]
  - Cancer surgery [Recovered/Resolved]
  - Pyrexia [Unknown]

NARRATIVE: CASE EVENT DATE: 20211124
